FAERS Safety Report 15843696 (Version 1)
Quarter: 2019Q1

REPORT INFORMATION
  Report Type: Spontaneous
  Country: US (occurrence: US)
  Receive Date: 20190118
  Receipt Date: 20190118
  Transmission Date: 20190417
  Serious: No
  Sender: FDA-Public Use
  Company Number: US-SUNOVION-2019SUN000124

PATIENT
  Age: 54 Year
  Sex: Female
  Weight: 69.39 kg

DRUGS (3)
  1. LATUDA [Suspect]
     Active Substance: LURASIDONE HYDROCHLORIDE
     Indication: BIPOLAR DISORDER
     Dosage: UNK
     Route: 048
     Dates: start: 2014, end: 2014
  2. VITAMINS NOS [Concomitant]
     Active Substance: VITAMINS
     Dosage: UNK
     Route: 065
  3. LAMICTAL [Concomitant]
     Active Substance: LAMOTRIGINE
     Indication: ENDOCRINE DISORDER
     Route: 065

REACTIONS (7)
  - Limb discomfort [Unknown]
  - Weight decreased [Unknown]
  - Feeling abnormal [Unknown]
  - Depression [Unknown]
  - Restless legs syndrome [Recovering/Resolving]
  - Fall [Unknown]
  - Weight increased [Recovering/Resolving]

NARRATIVE: CASE EVENT DATE: 2014
